FAERS Safety Report 24033118 (Version 2)
Quarter: 2024Q3

REPORT INFORMATION
  Report Type: Spontaneous
  Country: JP (occurrence: JP)
  Receive Date: 20240701
  Receipt Date: 20240828
  Transmission Date: 20241016
  Serious: Yes (Other)
  Sender: GENMAB
  Company Number: JP-GENMAB-2024-02191

PATIENT
  Age: 54 Year
  Sex: Female

DRUGS (4)
  1. EPKINLY [Suspect]
     Active Substance: EPCORITAMAB-BYSP
     Indication: Product used for unknown indication
     Dosage: 48 MILLIGRAM
     Route: 058
     Dates: start: 20231226
  2. SOLU-MEDROL [Concomitant]
     Active Substance: METHYLPREDNISOLONE SODIUM SUCCINATE
     Indication: Prophylaxis
     Dosage: 125 MILLIGRAM, ON DAY 1 OF ADMINISTRATION OF EPKINLY, FROM THE FIRST TO THE FOURTH ADMINISTRATIONS I
     Route: 041
     Dates: start: 2023
  3. POLARAMINE [Concomitant]
     Active Substance: DEXCHLORPHENIRAMINE MALEATE
     Indication: Prophylaxis
     Dosage: 5 MILLIGRAM, ON DAY 1 OF ADMINISTRATION OF EPKINLY, AT THE FIRST ADMINISTRATION IN CYCLE 1
     Route: 042
     Dates: start: 2023, end: 2023
  4. ACETAMINOPHEN [Concomitant]
     Active Substance: ACETAMINOPHEN
     Indication: Prophylaxis
     Dosage: 1000 MILLIGRAM, ON DAY 1 OF ADMINISTRATION OF EPKINLY, AT THE FIRST ADMINISTRATION IN CYCLE 1
     Route: 041
     Dates: start: 2023, end: 2023

REACTIONS (4)
  - Secondary immunodeficiency [Unknown]
  - Cytokine release syndrome [Recovered/Resolved]
  - Cytomegalovirus infection [Unknown]
  - Secondary adrenocortical insufficiency [Unknown]

NARRATIVE: CASE EVENT DATE: 20231230
